FAERS Safety Report 7749145-9 (Version None)
Quarter: 2011Q3

REPORT INFORMATION
  Report Type: 
  Country: None (occurrence: None)
  Receive Date: 20110914
  Receipt Date: 20110912
  Transmission Date: 20111222
  Serious: No
  Sender: FDA-Public Use
  Company Number: US-PFIZER INC-2011214136

PATIENT
  Sex: Female

DRUGS (1)
  1. EFFEXOR [Suspect]
     Dosage: UNK

REACTIONS (8)
  - MALAISE [None]
  - PAIN IN EXTREMITY [None]
  - DEPRESSION [None]
  - CRYING [None]
  - VIOLENCE-RELATED SYMPTOM [None]
  - POOR QUALITY SLEEP [None]
  - DEPRESSED MOOD [None]
  - DRUG INEFFECTIVE [None]
